FAERS Safety Report 8719691 (Version 2)
Quarter: 2013Q4

REPORT INFORMATION
  Report Type: Spontaneous
  Country: US (occurrence: US)
  Receive Date: 20120813
  Receipt Date: 20131118
  Transmission Date: 20140711
  Serious: Yes (Hospitalization, Other)
  Sender: FDA-Public Use
  Company Number: US-BAYER-2012-079197

PATIENT
  Age: 30 Year
  Sex: Female

DRUGS (20)
  1. SINGULAIR [Concomitant]
     Dosage: 100 MG, EVERY DAY
     Route: 048
     Dates: start: 20110306
  2. ALBUTEROL [Concomitant]
     Dosage: 1 PUFF(S), QID
     Dates: start: 20110306
  3. TOPAMAX [Concomitant]
     Dosage: 75 MG, EVERY DAY
     Route: 048
     Dates: start: 20110306
  4. CYMBALTA [Concomitant]
     Dosage: 30 MG, EVERY DAY
     Route: 048
     Dates: start: 20110306
  5. ZYRTEC [Concomitant]
     Dosage: 10 MG, EVERY DAY
     Route: 048
     Dates: start: 20110306
  6. PROVENTIL [Concomitant]
  7. MAALOX [Concomitant]
     Indication: MUSCULOSKELETAL CHEST PAIN
  8. MORPHINE [Concomitant]
     Indication: MUSCULOSKELETAL CHEST PAIN
  9. LIDOCAINE [Concomitant]
     Dosage: 2% VISCOUS SOLN (INTERPRETED AS SOLUTION)
  10. FLUCONAZOLE [Concomitant]
     Dosage: 200 MG, UNK
  11. YAZ [Suspect]
     Indication: CONTRACEPTION
     Dosage: UNK
     Dates: start: 20090414, end: 20100621
  12. SULFAMETHOXAZOLE/TRIMETHOPRIM [Concomitant]
     Dosage: 800/160 TABS, 1 TABLET BY MOUTH, BID
     Route: 048
     Dates: start: 20101214
  13. TRAMADOL [Concomitant]
     Dosage: 1 TABLET EVERY 4 HOURS AS NEEDED
     Route: 048
     Dates: start: 20110303
  14. NEURONTIN [Concomitant]
     Dosage: 600 MILLIGRAMS EVERY DAY AT BEDTIME.
     Route: 048
     Dates: start: 20110306
  15. NEURONTIN [Concomitant]
     Dosage: 1000 MG, BID
     Route: 048
     Dates: start: 20110306
  16. ZEGERID [Concomitant]
     Dosage: 1 CAPSULE EVERY DAILY
     Route: 048
     Dates: start: 20110306
  17. REGLAN [Concomitant]
     Dosage: 10 MILLIGRAM TABLETS, ON TABLET BEFORE MEALS AND AT BEDTIME
     Route: 048
     Dates: start: 20110306
  18. CARAFATE [Concomitant]
     Dosage: 1 G, QID
     Route: 048
     Dates: start: 20110306
  19. PERCOCET [Concomitant]
     Indication: PAIN
     Dosage: 5-325 MG,EVERY 4 TO 6 HOURS
     Route: 048
     Dates: start: 20110306
  20. PERCOCET [Concomitant]
     Indication: PAIN

REACTIONS (3)
  - Deep vein thrombosis [None]
  - Thrombophlebitis superficial [None]
  - Cholecystitis acute [None]
